FAERS Safety Report 20670481 (Version 16)
Quarter: 2022Q3

REPORT INFORMATION
  Report Type: Report from Study
  Country: BR (occurrence: None)
  Receive Date: 20220404
  Receipt Date: 20220919
  Transmission Date: 20221026
  Serious: Yes (Hospitalization, Other)
  Sender: FDA-Public Use
  Company Number: BR-Eisai Medical Research-EC-2022-112130

PATIENT
  Age: 65 Year
  Sex: Male
  Weight: 72 kg

DRUGS (12)
  1. LENVATINIB [Suspect]
     Active Substance: LENVATINIB
     Indication: Clear cell renal cell carcinoma
     Route: 048
     Dates: start: 20220217, end: 20220317
  2. LENVATINIB [Suspect]
     Active Substance: LENVATINIB
     Route: 048
     Dates: start: 20220401
  3. QUAVONLIMAB [Suspect]
     Active Substance: QUAVONLIMAB
     Indication: Clear cell renal cell carcinoma
     Dosage: 25 MG + 400 MG, UP TO 18 CYCLES OR PD OR DISCONTINUATION
     Route: 042
     Dates: start: 20220217, end: 20220217
  4. PEMBROLIZUMAB [Suspect]
     Active Substance: PEMBROLIZUMAB
     Dosage: 25 MG + 400 MG, UP TO 18 CYCLES OR PD OR DISCONTINUATION
     Route: 042
     Dates: start: 20220401
  5. BISACODYL [Concomitant]
     Active Substance: BISACODYL
     Dates: start: 20220222, end: 20220310
  6. CODEINE [Concomitant]
     Active Substance: CODEINE
     Dates: start: 20220225, end: 20220310
  7. MINERAL OIL [Concomitant]
     Active Substance: MINERAL OIL
     Dates: start: 20220225
  8. FUROSEMIDE [Concomitant]
     Active Substance: FUROSEMIDE
     Dates: start: 20220225, end: 20220422
  9. FERROUS SULFATE [Concomitant]
     Active Substance: FERROUS SULFATE
     Dates: start: 20220214
  10. METFORMIN HYDROCHLORIDE [Concomitant]
     Active Substance: METFORMIN HYDROCHLORIDE
     Dates: start: 202201, end: 20220324
  11. LOSARTAN [Concomitant]
     Active Substance: LOSARTAN
     Dates: start: 202109, end: 20220324
  12. GLICLAZIDE [Concomitant]
     Active Substance: GLICLAZIDE
     Dates: start: 202201, end: 20220324

REACTIONS (2)
  - Anaemia [Recovered/Resolved]
  - Chronic kidney disease [Recovered/Resolved]

NARRATIVE: CASE EVENT DATE: 20220318
